FAERS Safety Report 5527460-7 (Version None)
Quarter: 2007Q4

REPORT INFORMATION
  Report Type: 
  Country: None (occurrence: None)
  Receive Date: 20071123
  Receipt Date: 20071113
  Transmission Date: 20080405
  Serious: Yes (Hospitalization, Other)
  Sender: FDA-Public Use
  Company Number: US021447

PATIENT
  Age: 48 Year
  Sex: Female
  Weight: 190.5108 kg

DRUGS (13)
  1. PROVIGIL [Suspect]
     Indication: COGNITIVE DISORDER
     Dosage: QD ORAL
     Route: 048
     Dates: start: 20060801, end: 20060915
  2. PROVIGIL [Suspect]
     Indication: FATIGUE
     Dosage: QD ORAL
     Route: 048
     Dates: start: 20060801, end: 20060915
  3. RISPERDAL [Suspect]
     Indication: DEPRESSION
     Dosage: 3 MG QD ORAL
     Route: 048
     Dates: start: 20020101, end: 20060915
  4. ZYPREXA [Suspect]
  5. EFFEXOR XR [Concomitant]
  6. LITHIUM [Concomitant]
  7. PRILOSEC [Concomitant]
  8. ENABLEX [Concomitant]
  9. LIPITOR [Concomitant]
  10. TRIAMTERENE [Concomitant]
  11. MIRAPEX [Concomitant]
  12. POTASSIUM CHLORIDE [Concomitant]
  13. COUMADIN [Concomitant]

REACTIONS (24)
  - AFFECTIVE DISORDER [None]
  - ANAEMIA [None]
  - CANDIDIASIS [None]
  - DRUG INEFFECTIVE [None]
  - DYSPHAGIA [None]
  - FEAR [None]
  - HYPOAESTHESIA ORAL [None]
  - IMPAIRED GASTRIC EMPTYING [None]
  - LABORATORY TEST ABNORMAL [None]
  - LIP DRY [None]
  - MALNUTRITION [None]
  - MIGRAINE WITH AURA [None]
  - MUSCLE TWITCHING [None]
  - NAUSEA [None]
  - ORAL DISCOMFORT [None]
  - ORAL FIBROMA [None]
  - PARAESTHESIA ORAL [None]
  - SALIVARY GLAND DISORDER [None]
  - SKIN EXFOLIATION [None]
  - SOMATOFORM DISORDER [None]
  - STOMATITIS [None]
  - TARDIVE DYSKINESIA [None]
  - TREMOR [None]
  - VISUAL DISTURBANCE [None]
